FAERS Safety Report 6542054-2 (Version None)
Quarter: 2010Q1

REPORT INFORMATION
  Report Type: 
  Country: None (occurrence: None)
  Receive Date: 20100119
  Receipt Date: 20100111
  Transmission Date: 20100710
  Serious: Yes (Hospitalization, Other)
  Sender: FDA-Public Use
  Company Number: US-JNJFOC-20100105099

PATIENT
  Sex: Female
  Weight: 51.26 kg

DRUGS (8)
  1. DURAGESIC-100 [Suspect]
     Indication: PAIN
     Route: 062
  2. DURAGESIC-100 [Suspect]
     Route: 062
  3. DURAGESIC-100 [Suspect]
     Route: 062
  4. DURAGESIC-100 [Suspect]
     Route: 062
  5. FLEXERIL [Concomitant]
     Indication: MUSCLE RELAXANT THERAPY
     Route: 048
  6. SINEQUAN [Concomitant]
     Indication: SLEEP DISORDER
     Route: 048
  7. VICODIN [Concomitant]
     Indication: PAIN
     Route: 048
  8. OXYCODONE [Concomitant]
     Indication: PAIN
     Route: 048

REACTIONS (5)
  - APPLICATION SITE REACTION [None]
  - HYSTERECTOMY [None]
  - INAPPROPRIATE SCHEDULE OF DRUG ADMINISTRATION [None]
  - NARCOLEPSY [None]
  - TREATMENT NONCOMPLIANCE [None]
